FAERS Safety Report 20695614 (Version 1)
Quarter: 2022Q2

REPORT INFORMATION
  Report Type: Spontaneous
  Country: US (occurrence: None)
  Receive Date: 20220408
  Receipt Date: 20220408
  Transmission Date: 20220721
  Serious: Yes (Other)
  Sender: FDA-Public Use
  Company Number: None

PATIENT
  Age: 46 Year
  Sex: Female
  Weight: 80.1 kg

DRUGS (1)
  1. HUMIRA [Suspect]
     Active Substance: ADALIMUMAB
     Indication: Hidradenitis
     Dosage: OTHER QUANTITY : 1 INJECTION(S);?OTHER FREQUENCY : WEEKLY;?OTHER ROUTE : STOMACH;?
     Route: 050
     Dates: start: 20211115, end: 20220304

REACTIONS (6)
  - Psoriasis [None]
  - Rash [None]
  - Pustule [None]
  - Haemorrhage [None]
  - Pain [None]
  - Quality of life decreased [None]

NARRATIVE: CASE EVENT DATE: 20211120
